FAERS Safety Report 7230789-8 (Version None)
Quarter: 2011Q1

REPORT INFORMATION
  Report Type: 
  Country: None (occurrence: None)
  Receive Date: 20110118
  Receipt Date: 20110113
  Transmission Date: 20110831
  Serious: Yes (Death)
  Sender: FDA-Public Use
  Company Number: US-ASTRAZENECA-2010SE54237

PATIENT
  Age: 55 Year
  Sex: Female

DRUGS (3)
  1. KLONOPIN [Concomitant]
  2. SEROQUEL XR [Suspect]
     Indication: BIPOLAR DISORDER
     Route: 048
  3. EFFEXOR [Concomitant]

REACTIONS (3)
  - ARTERIOSCLEROSIS [None]
  - SUDDEN DEATH [None]
  - ARRHYTHMIA [None]
